FAERS Safety Report 5282199-0 (Version None)
Quarter: 2007Q1

REPORT INFORMATION
  Report Type: 
  Country: None (occurrence: None)
  Receive Date: 20070330
  Receipt Date: 20070320
  Transmission Date: 20070707
  Serious: Yes (Other)
  Sender: FDA-Public Use
  Company Number: FR-PFIZER INC-2007017799

PATIENT
  Sex: Male
  Weight: 70 kg

DRUGS (6)
  1. LYRICA [Suspect]
     Indication: NEUROPATHY
     Route: 048
  2. LYRICA [Suspect]
     Indication: PAIN
  3. LAMICTAL [Concomitant]
     Indication: PAIN
     Route: 048
  4. VEINOTONIC [Concomitant]
  5. ALL OTHER THERAPEUTIC PRODUCTS [Concomitant]
  6. TEGELINE [Concomitant]
     Route: 042

REACTIONS (2)
  - BLOOD CREATINE PHOSPHOKINASE INCREASED [None]
  - MYALGIA [None]
